FAERS Safety Report 13546541 (Version 1)
Quarter: 2017Q2

REPORT INFORMATION
  Report Type: Report from Study
  Country: US (occurrence: US)
  Receive Date: 20170515
  Receipt Date: 20170515
  Transmission Date: 20170830
  Serious: Yes (Other)
  Sender: FDA-Public Use
  Company Number: US-PFIZER INC-2017208402

PATIENT
  Age: 67 Year
  Sex: Female

DRUGS (1)
  1. IBRANCE [Suspect]
     Active Substance: PALBOCICLIB
     Indication: BREAST CANCER
     Dosage: 125 MG, 1X/DAY
     Route: 048
     Dates: start: 201508

REACTIONS (6)
  - Nasal congestion [Unknown]
  - Cough [Unknown]
  - White blood cell count decreased [Unknown]
  - Constipation [Unknown]
  - Alopecia [Unknown]
  - Myalgia [Unknown]
